FAERS Safety Report 11151800 (Version 2)
Quarter: 2015Q2

REPORT INFORMATION
  Report Type: Spontaneous
  Country: US (occurrence: US)
  Receive Date: 20150601
  Receipt Date: 20150611
  Transmission Date: 20150821
  Serious: No
  Sender: FDA-Public Use
  Company Number: US-PFIZER INC-2015172750

PATIENT
  Age: 59 Year
  Sex: Male

DRUGS (3)
  1. GABAPENTIN. [Suspect]
     Active Substance: GABAPENTIN
     Indication: NEUROPATHY PERIPHERAL
     Dosage: 2X 300MG DAILY
     Dates: start: 20150129
  2. GABAPENTIN. [Suspect]
     Active Substance: GABAPENTIN
     Dosage: 3X300MG, 6 TIMES A DAY
     Dates: end: 20150415
  3. GABAPENTIN. [Suspect]
     Active Substance: GABAPENTIN
     Indication: HYPOAESTHESIA
     Dosage: 6 X300 MG DAILY

REACTIONS (3)
  - Fall [Unknown]
  - Balance disorder [Unknown]
  - Fatigue [Unknown]
